FAERS Safety Report 10018094 (Version 2)
Quarter: 2014Q1

REPORT INFORMATION
  Report Type: Report from Study
  Country: RO (occurrence: RO)
  Receive Date: 20140318
  Receipt Date: 20140327
  Transmission Date: 20141002
  Serious: Yes (Hospitalization)
  Sender: FDA-Public Use
  Company Number: RO-PFIZER INC-2014077167

PATIENT
  Age: 75 Year
  Sex: 0

DRUGS (4)
  1. AMIODARONE HCL [Suspect]
     Dosage: UNK
     Route: 065
  2. DILTIAZEM HCL [Interacting]
     Dosage: UNK
     Route: 065
  3. METOPROLOL TARTRATE [Interacting]
     Dosage: UNK
     Route: 065
  4. PROPAFENONE [Interacting]
     Dosage: UNK
     Route: 065

REACTIONS (2)
  - Drug interaction [Unknown]
  - Atrioventricular block [Unknown]
